FAERS Safety Report 4618109-6 (Version None)
Quarter: 2005Q1

REPORT INFORMATION
  Report Type: 
  Country: None (occurrence: None)
  Receive Date: 20050322
  Receipt Date: 20050309
  Transmission Date: 20050727
  Serious: Yes (Death)
  Sender: FDA-Public Use
  Company Number: AZAUS200500079

PATIENT
  Age: 83 Year
  Sex: Female

DRUGS (2)
  1. VIDAZA [Suspect]
     Indication: MYELODYSPLASTIC SYNDROME
     Dates: start: 20040101, end: 20040101
  2. THALOMID [Suspect]
     Indication: MYELODYSPLASTIC SYNDROME
     Dosage: 200 MG (AT BEDTIME), ORAL
     Route: 048
     Dates: start: 20030801, end: 20041028

REACTIONS (2)
  - DRUG INTOLERANCE [None]
  - HAEMORRHAGE [None]
